FAERS Safety Report 7961391-8 (Version None)
Quarter: 2011Q4

REPORT INFORMATION
  Report Type: 
  Country: None (occurrence: None)
  Receive Date: 20111202
  Receipt Date: 20111118
  Transmission Date: 20120403
  Serious: Yes (Other)
  Sender: FDA-Public Use
  Company Number: TPA2011A07848

PATIENT
  Age: 76 Year
  Sex: Male

DRUGS (4)
  1. ACTOS [Suspect]
     Indication: TYPE 2 DIABETES MELLITUS
     Dosage: 5 MG, 1 IN 1 D, PER ORAL, 30 MG, 1 IN 1 D, PER ORAL, 45 MG, 1 IN 1 D, PER ORAL
     Route: 048
     Dates: start: 20051001, end: 20070201
  2. ACTOS [Suspect]
     Indication: TYPE 2 DIABETES MELLITUS
     Dosage: 5 MG, 1 IN 1 D, PER ORAL, 30 MG, 1 IN 1 D, PER ORAL, 45 MG, 1 IN 1 D, PER ORAL
     Route: 048
     Dates: start: 20090901, end: 20111003
  3. ACTOS [Suspect]
     Indication: TYPE 2 DIABETES MELLITUS
     Dosage: 5 MG, 1 IN 1 D, PER ORAL, 30 MG, 1 IN 1 D, PER ORAL, 45 MG, 1 IN 1 D, PER ORAL
     Route: 048
     Dates: start: 20070201, end: 20090901
  4. TRICOR [Concomitant]

REACTIONS (1)
  - BLADDER CANCER [None]
